FAERS Safety Report 6298814-9 (Version None)
Quarter: 2009Q3

REPORT INFORMATION
  Report Type: 
  Country: None (occurrence: None)
  Receive Date: 20090806
  Receipt Date: 20090727
  Transmission Date: 20100115
  Serious: Yes (Other)
  Sender: FDA-Public Use
  Company Number: CA-PFIZER INC-2009216724

PATIENT
  Age: 55 Year

DRUGS (9)
  1. ZELDOX [Suspect]
     Indication: BIPOLAR DISORDER
     Dosage: 20 MG, 1X/DAY, AT 21H
     Dates: start: 20090101, end: 20090426
  2. ZELDOX [Suspect]
     Dosage: 40 MG, 1X/DAY, AT 21H
     Dates: start: 20090427, end: 20090521
  3. CRANBERRY [Concomitant]
     Indication: PROPHYLAXIS URINARY TRACT INFECTION
     Dosage: UNK
  4. LOVAZA [Concomitant]
     Dosage: UNK
     Dates: start: 20080101
  5. TYLENOL (CAPLET) [Concomitant]
     Indication: OSTEOARTHRITIS
     Dosage: 1000 MG, 2X/DAY
     Dates: start: 20080101
  6. RIVOTRIL [Concomitant]
     Dosage: UNK
  7. ECHINACEA [Concomitant]
  8. CLOBETASOL [Concomitant]
     Indication: LICHEN SCLEROSUS
     Dosage: TWICE A WEEK
  9. CARBOCAL [Concomitant]
     Indication: OSTEOPOROSIS PROPHYLAXIS
     Dosage: UNK
     Dates: start: 20080101

REACTIONS (15)
  - ACTIVITIES OF DAILY LIVING IMPAIRED [None]
  - ANXIETY [None]
  - CONSTIPATION [None]
  - DEPRESSION [None]
  - FALL [None]
  - HYPERSOMNIA [None]
  - HYPOAESTHESIA [None]
  - MANIA [None]
  - NAUSEA [None]
  - NERVOUSNESS [None]
  - PANIC REACTION [None]
  - SENSE OF OPPRESSION [None]
  - SOMNOLENCE [None]
  - SUICIDAL IDEATION [None]
  - WEIGHT DECREASED [None]
